FAERS Safety Report 6635307-0 (Version None)
Quarter: 2010Q1

REPORT INFORMATION
  Report Type: 
  Country: None (occurrence: None)
  Receive Date: 20100315
  Receipt Date: 20100303
  Transmission Date: 20100710
  Serious: Yes (Other)
  Sender: FDA-Public Use
  Company Number: PL-PFIZER INC-2010028360

PATIENT
  Age: 57 Year
  Sex: Female

DRUGS (7)
  1. DOXORUBICIN HCL [Suspect]
     Indication: LEUKAEMIA PLASMACYTIC
     Dosage: 9 MG/M2, ON DAYS 1-4 OF A 21-DAY CYCLE
     Dates: start: 20061001, end: 20070101
  2. DOXORUBICIN HCL [Suspect]
     Dosage: 9 MG/M2, ON DAYS 1-4 OF A 21-DAY CYCLE
     Dates: start: 20071101, end: 20080601
  3. VELCADE [Suspect]
     Indication: LEUKAEMIA PLASMACYTIC
     Dosage: ON DAYS 1, 4, 8 AND 11 OF A 21-DAY CYCLE
     Route: 040
     Dates: start: 20061001, end: 20070101
  4. VELCADE [Suspect]
     Dosage: ON DAYS 1, 4, 8 AND 11 OF A 21-DAY CYCLE
     Route: 040
     Dates: start: 20071101, end: 20080601
  5. DEXAMETHASONE [Suspect]
     Indication: LEUKAEMIA PLASMACYTIC
     Dosage: 40 MG, ON DAYS 1-4 OF A 21-DAY CYCLE
     Dates: start: 20061001, end: 20070101
  6. DEXAMETHASONE [Suspect]
     Dosage: 40 MG, ON DAYS 1-4 OF A 21-DAY CYCLE
     Dates: start: 20071101, end: 20080601
  7. CYCLOPHOSPHAMIDE [Concomitant]
     Dosage: UNK

REACTIONS (16)
  - CONSTIPATION [None]
  - DIARRHOEA [None]
  - HEPATITIS B DNA ASSAY POSITIVE [None]
  - HERPES ZOSTER [None]
  - HYPOKALAEMIA [None]
  - HYPONATRAEMIA [None]
  - HYPOTONIA [None]
  - NEUTROPENIA [None]
  - POLYNEUROPATHY [None]
  - RESPIRATORY TRACT INFECTION [None]
  - SEPSIS [None]
  - SUBILEUS [None]
  - THROMBOCYTOPENIA [None]
  - TRANSAMINASES INCREASED [None]
  - URINARY TRACT INFECTION [None]
  - VISUAL IMPAIRMENT [None]
